FAERS Safety Report 18494824 (Version 4)
Quarter: 2021Q1

REPORT INFORMATION
  Report Type: Report from Study
  Country: US (occurrence: US)
  Receive Date: 20201112
  Receipt Date: 20210312
  Transmission Date: 20210419
  Serious: No
  Sender: FDA-Public Use
  Company Number: NVSC2020US294784

PATIENT
  Sex: Female

DRUGS (1)
  1. KESIMPTA [Suspect]
     Active Substance: OFATUMUMAB
     Indication: RELAPSING-REMITTING MULTIPLE SCLEROSIS
     Dosage: 20 MG, QMO (SOLUTION FOR INJECTION)
     Route: 058
     Dates: start: 20201101

REACTIONS (3)
  - Visual impairment [Unknown]
  - Incorrect dose administered [Unknown]
  - Underdose [Recovered/Resolved]
